FAERS Safety Report 22771883 (Version 3)
Quarter: 2024Q4

REPORT INFORMATION
  Report Type: Spontaneous
  Country: CN (occurrence: CN)
  Receive Date: 20230801
  Receipt Date: 20241128
  Transmission Date: 20250114
  Serious: Yes (Other)
  Sender: PFIZER
  Company Number: CN-PFIZER INC-PV202300130399

PATIENT
  Age: 71 Year
  Sex: Male

DRUGS (4)
  1. PACLITAXEL [Suspect]
     Active Substance: PACLITAXEL
     Indication: Colon cancer metastatic
     Dosage: UNK, CYCLIC
  2. OXALIPLATIN [Suspect]
     Active Substance: OXALIPLATIN
     Indication: Colon cancer metastatic
     Dosage: UNK, CYCLIC
  3. OXALIPLATIN [Suspect]
     Active Substance: OXALIPLATIN
     Dosage: 8 CYCLES, CYCLIC
  4. CAPECITABINE [Suspect]
     Active Substance: CAPECITABINE
     Indication: Colon cancer metastatic
     Dosage: 8 CYCLES, CYCLIC

REACTIONS (2)
  - Liver injury [Unknown]
  - Off label use [Unknown]
